FAERS Safety Report 21768228 (Version 1)
Quarter: 2022Q4

REPORT INFORMATION
  Report Type: Spontaneous
  Country: PL (occurrence: PL)
  Receive Date: 20221222
  Receipt Date: 20221222
  Transmission Date: 20230112
  Serious: Yes (Other)
  Sender: FDA-Public Use
  Company Number: PL-TEVA-2022-PL-2838359

PATIENT
  Sex: Male

DRUGS (4)
  1. CYCLOSPORINE [Suspect]
     Active Substance: CYCLOSPORINE
     Indication: Nephrotic syndrome
     Dosage: ADDITIONAL INFO: GRADUAL REDUCTION IN DOSE
     Route: 065
  2. MYCOPHENOLATE MOFETIL [Suspect]
     Active Substance: MYCOPHENOLATE MOFETIL
     Indication: Nephrotic syndrome
     Dosage: ADDITIONAL INFO: GRADUAL REDUCTION IN DOSE
     Route: 065
  3. PREDNISONE [Suspect]
     Active Substance: PREDNISONE
     Indication: Nephrotic syndrome
     Dosage: 50-60 MG FOR APPROXIMATELY 20 YEARS , ADDITIONAL INFO: GRADUALLY DOSE OF PREDNISONE WAS TAPERED DOWN
     Route: 065
  4. CYCLOPHOSPHAMIDE [Suspect]
     Active Substance: CYCLOPHOSPHAMIDE
     Indication: Nephrotic syndrome
     Dosage: ADDITIONAL INFO: GRADUAL REDUCTION IN DOSE
     Route: 065

REACTIONS (14)
  - Drug ineffective [Unknown]
  - Hypertension [Unknown]
  - Dyslipidaemia [Unknown]
  - Gastric disorder [Unknown]
  - Cholelithiasis [Unknown]
  - Spinal osteoarthritis [Unknown]
  - Urinary tract infection [Unknown]
  - Gastroenteritis salmonella [Unknown]
  - Acute kidney injury [Unknown]
  - Acute respiratory failure [Unknown]
  - Staphylococcal sepsis [Unknown]
  - Lung abscess [Unknown]
  - Antiphospholipid syndrome [Unknown]
  - Rebound effect [Recovered/Resolved]
